FAERS Safety Report 12456356 (Version 1)
Quarter: 2016Q2

REPORT INFORMATION
  Report Type: Spontaneous
  Country: US (occurrence: US)
  Receive Date: 20160610
  Receipt Date: 20160610
  Transmission Date: 20160815
  Serious: Yes (Other)
  Sender: FDA-Public Use
  Company Number: US-SA-2016SA105182

PATIENT
  Sex: Male

DRUGS (5)
  1. SOLOSTAR [Concomitant]
     Active Substance: DEVICE
     Indication: TYPE 1 DIABETES MELLITUS
  2. LANTUS [Concomitant]
     Active Substance: INSULIN GLARGINE
  3. LANTUS [Concomitant]
     Active Substance: INSULIN GLARGINE
  4. TOUJEO [Suspect]
     Active Substance: INSULIN GLARGINE
     Indication: TYPE 1 DIABETES MELLITUS
     Dosage: DOSE:54 UNIT(S)
     Route: 065
  5. NOVOLOG [Concomitant]
     Active Substance: INSULIN ASPART

REACTIONS (1)
  - Suicidal behaviour [Recovered/Resolved]
